FAERS Safety Report 6985405-7 (Version None)
Quarter: 2010Q3

REPORT INFORMATION
  Report Type: 
  Country: None (occurrence: None)
  Receive Date: 20100915
  Receipt Date: 20100910
  Transmission Date: 20110219
  Serious: Yes (Hospitalization)
  Sender: FDA-Public Use
  Company Number: A0764148A

PATIENT
  Age: 68 Year
  Sex: Female
  Weight: 126.8 kg

DRUGS (15)
  1. AVANDIA [Suspect]
     Dosage: 4MG PER DAY
     Route: 048
     Dates: end: 20070101
  2. LISINOPRIL [Concomitant]
     Indication: BLOOD PRESSURE
  3. GLUCOPHAGE [Concomitant]
  4. METFORMIN [Concomitant]
  5. ZOCOR [Concomitant]
  6. ATENOLOL [Concomitant]
  7. ALPRAZOLAM [Concomitant]
  8. FAMOTIDINE [Concomitant]
  9. METFORMIN [Concomitant]
  10. GLIPIZIDE [Concomitant]
  11. SYNTHROID [Concomitant]
  12. ALBUTEROL [Concomitant]
  13. COMBIVENT [Concomitant]
  14. PROCRIT [Concomitant]
  15. EPOGEN [Concomitant]

REACTIONS (6)
  - CARDIAC DISORDER [None]
  - CARDIAC FAILURE CONGESTIVE [None]
  - CORONARY ARTERY DISEASE [None]
  - INTRACARDIAC THROMBUS [None]
  - MITRAL VALVE REPAIR [None]
  - MYOCARDIAL INFARCTION [None]
